FAERS Safety Report 8814504 (Version 1)
Quarter: 2012Q4

REPORT INFORMATION
  Report Type: 
  Country: NO (occurrence: NO)
  Receive Date: 20120928
  Receipt Date: 20120928
  Transmission Date: 20130627
  Serious: Yes (Other)
  Sender: FDA-Public Use
  Company Number: PHHY2012NO084346

PATIENT

DRUGS (1)
  1. LEPONEX [Suspect]
     Route: 048

REACTIONS (2)
  - Enuresis [Unknown]
  - Urinary incontinence [Unknown]
